FAERS Safety Report 10896958 (Version 2)
Quarter: 2015Q2

REPORT INFORMATION
  Report Type: Report from Study
  Country: NL (occurrence: NL)
  Receive Date: 20150309
  Receipt Date: 20150412
  Transmission Date: 20150821
  Serious: Yes (Death)
  Sender: FDA-Public Use
  Company Number: PHHY2015NL027335

PATIENT
  Age: 49 Year
  Sex: Male

DRUGS (1)
  1. ZOMETA [Suspect]
     Active Substance: ZOLEDRONIC ACID
     Indication: PLASMA CELL MYELOMA
     Dosage: 4 MG/ 100 ML, ONCE EVERY 4 WEEKS
     Route: 042

REACTIONS (3)
  - Renal failure [Fatal]
  - Plasma cell myeloma [Fatal]
  - Malignant neoplasm progression [Fatal]

NARRATIVE: CASE EVENT DATE: 20150305
